FAERS Safety Report 21090925 (Version 1)
Quarter: 2022Q3

REPORT INFORMATION
  Report Type: Spontaneous
  Country: FR (occurrence: FR)
  Receive Date: 20220716
  Receipt Date: 20220716
  Transmission Date: 20221026
  Serious: Yes (Disabling)
  Sender: FDA-Public Use
  Company Number: None

PATIENT
  Age: 63 Year
  Sex: Male
  Weight: 71 kg

DRUGS (3)
  1. ALPRAZOLAM [Suspect]
     Active Substance: ALPRAZOLAM
     Indication: Mixed anxiety and depressive disorder
     Dosage: UNIT DOSE : 1.5 MG , FREQUENCY TIME : 1 DAYS
     Dates: start: 201412
  2. EFFEXOR [Suspect]
     Active Substance: VENLAFAXINE HYDROCHLORIDE
     Indication: Mixed anxiety and depressive disorder
     Dosage: FORM STRENGTH : 75 MG  , UNIT DOSE : 4 DF , FREQUENCY TIME : 1 DAYS
     Dates: start: 201412
  3. QUETIAPINE FUMARATE [Suspect]
     Active Substance: QUETIAPINE FUMARATE
     Indication: Mixed anxiety and depressive disorder
     Dosage: FORM STRENGTH : 400 MG  , UNIT DOSE : 400 MG , FREQUENCY TIME : 1 DAYS , DURATION : 7 YEARS
     Dates: start: 201412, end: 202206

REACTIONS (1)
  - Congestive cardiomyopathy [Not Recovered/Not Resolved]

NARRATIVE: CASE EVENT DATE: 20220331
